FAERS Safety Report 14705523 (Version 2)
Quarter: 2018Q2

REPORT INFORMATION
  Report Type: Report from Study
  Country: BE (occurrence: BE)
  Receive Date: 20180402
  Receipt Date: 20180503
  Transmission Date: 20180711
  Serious: Yes (Hospitalization)
  Sender: FDA-Public Use
  Company Number: BE-JNJFOC-20180339944

PATIENT
  Age: 65 Year
  Sex: Female
  Weight: 75.5 kg

DRUGS (5)
  1. PANTOPRAZOLE [Concomitant]
     Active Substance: PANTOPRAZOLE
     Route: 065
     Dates: start: 20180306
  2. LAXOBERON [Concomitant]
     Active Substance: SODIUM PICOSULFATE
     Route: 065
     Dates: start: 20180301
  3. XARELTO [Suspect]
     Active Substance: RIVAROXABAN
     Indication: EMBOLISM VENOUS
     Route: 048
     Dates: start: 20170901
  4. ONDANSETRON [Concomitant]
     Active Substance: ONDANSETRON
     Route: 065
     Dates: start: 20180313
  5. ONDANSETRON [Concomitant]
     Active Substance: ONDANSETRON
     Route: 065
     Dates: start: 20180301, end: 20180306

REACTIONS (3)
  - Large intestinal obstruction [Recovered/Resolved]
  - Anaemia [Recovered/Resolved]
  - Calculus urinary [Recovered/Resolved]

NARRATIVE: CASE EVENT DATE: 20180226
